FAERS Safety Report 9507016 (Version 1)
Quarter: 2013Q3

REPORT INFORMATION
  Report Type: Spontaneous
  Country: US (occurrence: None)
  Receive Date: 20130905
  Receipt Date: 20130905
  Transmission Date: 20140515
  Serious: Yes (Other)
  Sender: FDA-Public Use
  Company Number: None

PATIENT
  Age: 80 Year
  Sex: Male
  Weight: 108.86 kg

DRUGS (1)
  1. BYDUREON [Suspect]
     Indication: TYPE 2 DIABETES MELLITUS
     Dosage: 1 PREP. DOSE 1X WEEK SUBQ ?OCT 25 945 AM
     Route: 058
     Dates: start: 20131025

REACTIONS (5)
  - Dizziness [None]
  - Nocturia [None]
  - Diarrhoea [None]
  - Fatigue [None]
  - Blood glucose increased [None]
